FAERS Safety Report 20495615 (Version 1)
Quarter: 2022Q1

REPORT INFORMATION
  Report Type: Spontaneous
  Country: NO (occurrence: NO)
  Receive Date: 20220221
  Receipt Date: 20220221
  Transmission Date: 20220423
  Serious: Yes (Hospitalization)
  Sender: FDA-Public Use
  Company Number: NO-MYLANLABS-2022M1009630

PATIENT
  Sex: Female

DRUGS (1)
  1. FURADANTIN [Suspect]
     Active Substance: NITROFURANTOIN
     Indication: Urinary tract infection
     Dosage: UNK
     Dates: start: 20201204, end: 20201211

REACTIONS (12)
  - Condition aggravated [Unknown]
  - Sepsis [Unknown]
  - Poisoning [Unknown]
  - Interstitial lung disease [Unknown]
  - Respiratory failure [Unknown]
  - Dehydration [Unknown]
  - Systemic inflammatory response syndrome [Unknown]
  - Nightmare [Unknown]
  - Blindness unilateral [Recovered/Resolved]
  - Facial paralysis [Recovered/Resolved]
  - Fatigue [Unknown]
  - Pneumonitis [Unknown]

NARRATIVE: CASE EVENT DATE: 20201201
